FAERS Safety Report 19202732 (Version 4)
Quarter: 2021Q3

REPORT INFORMATION
  Report Type: Report from Study
  Country: US (occurrence: US)
  Receive Date: 20210430
  Receipt Date: 20210821
  Transmission Date: 20211014
  Serious: Yes (Death, Other)
  Sender: FDA-Public Use
  Company Number: NVSC2021US098229

PATIENT
  Age: 76 Year
  Sex: Female

DRUGS (1)
  1. TABRECTA [Suspect]
     Active Substance: CAPMATINIB
     Indication: NON-SMALL CELL LUNG CANCER
     Dosage: 150 MG, BID (ORAL?VIA?MOUTH)
     Route: 048
     Dates: start: 20210413, end: 20210719

REACTIONS (8)
  - Death [Fatal]
  - Cough [Unknown]
  - Choking [Unknown]
  - Weight decreased [Unknown]
  - Chromaturia [Unknown]
  - Wheezing [Unknown]
  - Malaise [Unknown]
  - Nausea [Unknown]

NARRATIVE: CASE EVENT DATE: 20210726
